FAERS Safety Report 20918919 (Version 1)
Quarter: 2022Q2

REPORT INFORMATION
  Report Type: Spontaneous
  Country: US (occurrence: US)
  Receive Date: 20220606
  Receipt Date: 20220606
  Transmission Date: 20220721
  Serious: Yes (Hospitalization, Other)
  Sender: FDA-Public Use
  Company Number: US-APOTEX-2022AP008663

PATIENT
  Age: 30 Year
  Sex: Male

DRUGS (4)
  1. KETOROLAC [Suspect]
     Active Substance: KETOROLAC TROMETHAMINE
     Indication: Analgesic intervention supportive therapy
     Dosage: 1 DOSAGE FORM
     Route: 042
  2. KETOROLAC [Suspect]
     Active Substance: KETOROLAC TROMETHAMINE
     Indication: Fibula fracture
  3. NAPROXEN [Suspect]
     Active Substance: NAPROXEN
     Indication: Analgesic intervention supportive therapy
     Dosage: 440 MILLIGRAM, BID
     Route: 065
  4. NAPROXEN [Suspect]
     Active Substance: NAPROXEN
     Dosage: 220 MILLIGRAM, ADDITIONAL DOSE 2 DAYS LATER
     Route: 065

REACTIONS (1)
  - Acute kidney injury [Recovered/Resolved]
